FAERS Safety Report 7829789-6 (Version None)
Quarter: 2011Q4

REPORT INFORMATION
  Report Type: 
  Country: None (occurrence: None)
  Receive Date: 20111020
  Receipt Date: 20111020
  Transmission Date: 20120403
  Serious: Yes (Life-Threatening, Hospitalization, Disabling)
  Sender: FDA-Public Use
  Company Number: None

PATIENT
  Age: 85 Year
  Sex: Female
  Weight: 76.6579 kg

DRUGS (1)
  1. CYMBALTA [Suspect]
     Indication: DEPRESSION
     Dosage: 30MG 1 A DAY
     Dates: start: 20110606, end: 20111006

REACTIONS (8)
  - ABDOMINAL PAIN UPPER [None]
  - ASTHENIA [None]
  - GAIT DISTURBANCE [None]
  - MOVEMENT DISORDER [None]
  - CONFUSIONAL STATE [None]
  - FALL [None]
  - PRURITUS [None]
  - SYNCOPE [None]
